FAERS Safety Report 7794845-8 (Version None)
Quarter: 2011Q4

REPORT INFORMATION
  Report Type: 
  Country: None (occurrence: None)
  Receive Date: 20111004
  Receipt Date: 20110920
  Transmission Date: 20120403
  Serious: Yes (Other)
  Sender: FDA-Public Use
  Company Number: PHHY2011BR84968

PATIENT
  Weight: 90 kg

DRUGS (6)
  1. CAPTOPRIL [Concomitant]
     Dosage: 25 MG EVERY 12 HOURS
  2. DIOVAN HCT [Suspect]
     Indication: HYPERTENSION
     Dosage: 320/12.5 MG
  3. CAPTOPRIL [Concomitant]
     Dosage: 150 MG, DAILY
  4. ADALAT [Concomitant]
     Dosage: 30 MG, UNK
  5. HYDROCHLOROTHIAZIDE [Concomitant]
     Dosage: 12.5 MG DAILY
  6. LOSARTAN POTASSIUM [Concomitant]
     Dosage: 50 MG, DAILY

REACTIONS (7)
  - HYPERTENSION [None]
  - BLOOD TRIGLYCERIDES INCREASED [None]
  - CAROTID ARTERY OCCLUSION [None]
  - MICROALBUMINURIA [None]
  - BLOOD GLUCOSE INCREASED [None]
  - LEFT VENTRICULAR HYPERTROPHY [None]
  - BLOOD UREA INCREASED [None]
